FAERS Safety Report 19307196 (Version 1)
Quarter: 2021Q2

REPORT INFORMATION
  Report Type: Spontaneous
  Country: US (occurrence: US)
  Receive Date: 20210526
  Receipt Date: 20210526
  Transmission Date: 20210717
  Serious: Yes (Other)
  Sender: FDA-Public Use
  Company Number: US-PFIZER INC-2021064111

PATIENT
  Age: 50 Year
  Sex: Male
  Weight: 81.18 kg

DRUGS (8)
  1. ALBUTEROL [SALBUTAMOL] [Concomitant]
     Active Substance: ALBUTEROL
  2. ACETAZOLAMIDE. [Concomitant]
     Active Substance: ACETAZOLAMIDE
  3. CYANOCOBALAMINE [Concomitant]
     Active Substance: CYANOCOBALAMIN
  4. PROCHLORPERAZINE. [Concomitant]
     Active Substance: PROCHLORPERAZINE
  5. AMBIEN [Concomitant]
     Active Substance: ZOLPIDEM TARTRATE
  6. LORBRENA [Suspect]
     Active Substance: LORLATINIB
     Indication: NON-SMALL CELL LUNG CANCER
     Dosage: 25 MG, 4X/DAY
     Route: 048
     Dates: start: 20190314
  7. SCOPOLAMIN [Concomitant]
     Active Substance: SCOPOLAMINE
  8. AZITHROMYCIN ANHYDROUS. [Concomitant]
     Active Substance: AZITHROMYCIN ANHYDROUS

REACTIONS (3)
  - Neurotoxicity [Unknown]
  - Product dose omission issue [Unknown]
  - Confusional state [Unknown]

NARRATIVE: CASE EVENT DATE: 20190909
